FAERS Safety Report 6550908-6 (Version None)
Quarter: 2010Q1

REPORT INFORMATION
  Report Type: 
  Country: None (occurrence: None)
  Receive Date: 20100125
  Receipt Date: 20100120
  Transmission Date: 20100710
  Serious: Yes (Death)
  Sender: FDA-Public Use
  Company Number: PHHY2010CA03472

PATIENT
  Age: 60 Year
  Sex: Female

DRUGS (6)
  1. CLOZAPINE [Suspect]
     Indication: SCHIZOAFFECTIVE DISORDER
  2. THIORIDAZINE HCL [Suspect]
  3. BENZODIAZEPINES [Suspect]
  4. LEVOPROMAZIN [Suspect]
  5. SULPIRIDE [Suspect]
  6. FLUPHENAZINE [Suspect]

REACTIONS (1)
  - MYOCARDIAL INFARCTION [None]
